FAERS Safety Report 9839222 (Version 2)
Quarter: 2014Q1

REPORT INFORMATION
  Report Type: Spontaneous
  Country: JP (occurrence: JP)
  Receive Date: 20140123
  Receipt Date: 20140123
  Transmission Date: 20141002
  Serious: Yes (Other)
  Sender: FDA-Public Use
  Company Number: JP-TAKEDA-TPA2013A02385

PATIENT
  Sex: 0

DRUGS (3)
  1. FEBURIC [Suspect]
     Indication: GOUT
     Route: 048
     Dates: start: 20121127, end: 20130312
  2. AMLODIPINE [Concomitant]
     Indication: HYPERTENSION
     Dosage: 5 MG, QD
     Route: 048
  3. NU-LOTAN [Concomitant]
     Indication: HYPERTENSION
     Dosage: 50 MG, QD
     Route: 048

REACTIONS (1)
  - Rash generalised [Recovered/Resolved]
